FAERS Safety Report 6274349-4 (Version None)
Quarter: 2009Q3

REPORT INFORMATION
  Report Type: 
  Country: None (occurrence: None)
  Receive Date: 20090716
  Receipt Date: 20090710
  Transmission Date: 20100115
  Serious: Yes (Hospitalization)
  Sender: FDA-Public Use
  Company Number: SP02468

PATIENT
  Sex: Male

DRUGS (1)
  1. XIFAXAN [Suspect]
     Indication: DRUG USE FOR UNKNOWN INDICATION
     Dosage: ORAL
     Route: 048
     Dates: start: 20090101

REACTIONS (1)
  - HEPATITIS CHOLESTATIC [None]
